FAERS Safety Report 4397125-6 (Version None)
Quarter: 2004Q3

REPORT INFORMATION
  Report Type: 
  Country: None (occurrence: None)
  Receive Date: 20040708
  Receipt Date: 20040625
  Transmission Date: 20050211
  Serious: Yes (Hospitalization)
  Sender: FDA-Public Use
  Company Number: 002-0981-M0000356

PATIENT
  Age: 63 Year
  Sex: Male
  Weight: 71 kg

DRUGS (10)
  1. ATORVASTATIN CALCIUM [Suspect]
     Indication: CORONARY ARTERY DISEASE
     Dosage: SEE IMAGE
     Route: 048
     Dates: start: 19990802, end: 19990922
  2. ATORVASTATIN CALCIUM [Suspect]
     Indication: CORONARY ARTERY DISEASE
     Dosage: SEE IMAGE
     Route: 048
     Dates: start: 19990923
  3. NITROGLYCERIN [Concomitant]
  4. ACETYLSALICYLIC ACID SRT [Concomitant]
  5. CARBAMAZEPINE [Concomitant]
  6. DOXAZOSIN MESYLATE [Concomitant]
  7. ATENOLOL [Concomitant]
  8. RAMIPRIL [Concomitant]
  9. AMLODIPINE [Concomitant]
  10. NITRAZEPAM [Concomitant]

REACTIONS (3)
  - CIRCULATORY COLLAPSE [None]
  - INTENTIONAL OVERDOSE [None]
  - SYNCOPE [None]
